FAERS Safety Report 19327764 (Version 3)
Quarter: 2021Q4

REPORT INFORMATION
  Report Type: Report from Study
  Country: KR (occurrence: KR)
  Receive Date: 20210528
  Receipt Date: 20211103
  Transmission Date: 20220304
  Serious: Yes (Death, Life-Threatening, Hospitalization, Other)
  Sender: FDA-Public Use
  Company Number: KR-KYOWAKIRIN-2021AKK008803

PATIENT
  Age: 52 Year
  Sex: Female

DRUGS (38)
  1. FILGRASTIM [Suspect]
     Active Substance: FILGRASTIM
     Indication: Product used for unknown indication
     Dosage: 20 UNK
     Route: 065
     Dates: start: 20110808, end: 20210812
  2. DECITABINE [Concomitant]
     Active Substance: DECITABINE
     Indication: Product used for unknown indication
     Dosage: 20 UNK
     Dates: start: 20110808, end: 20110812
  3. DECITABINE [Concomitant]
     Active Substance: DECITABINE
     Dosage: 20 UNK
     Dates: start: 20110919, end: 20110923
  4. DECITABINE [Concomitant]
     Active Substance: DECITABINE
     Dosage: 20 UNK
     Dates: start: 20111031, end: 20111104
  5. DECITABINE [Concomitant]
     Active Substance: DECITABINE
     Dosage: 20 UNK
     Dates: start: 20111212, end: 20111216
  6. DECITABINE [Concomitant]
     Active Substance: DECITABINE
     Dosage: 20 UNK
     Dates: start: 20120130, end: 20120203
  7. DECITABINE [Concomitant]
     Active Substance: DECITABINE
     Dosage: 20 UNK
     Dates: start: 20120319, end: 20120323
  8. DECITABINE [Concomitant]
     Active Substance: DECITABINE
     Dosage: 20 UNK
     Dates: start: 20120507, end: 20120511
  9. DECITABINE [Concomitant]
     Active Substance: DECITABINE
     Dosage: 20 UNK
     Dates: start: 20120702, end: 20120706
  10. DECITABINE [Concomitant]
     Active Substance: DECITABINE
     Dosage: 20 UNK
     Dates: start: 20120903, end: 20120907
  11. DECITABINE [Concomitant]
     Active Substance: DECITABINE
     Dosage: 20 UNK
     Dates: start: 20121112, end: 20121113
  12. DECITABINE [Concomitant]
     Active Substance: DECITABINE
     Dosage: 20 UNK
     Dates: start: 20121113, end: 20121115
  13. DECITABINE [Concomitant]
     Active Substance: DECITABINE
     Dosage: 20 UNK
     Dates: start: 20110919, end: 20110923
  14. DECITABINE [Concomitant]
     Active Substance: DECITABINE
     Dosage: 20 UNK
     Dates: start: 20111031, end: 20111104
  15. DECITABINE [Concomitant]
     Active Substance: DECITABINE
     Dosage: 20 UNK
     Dates: start: 20120130, end: 20120203
  16. DECITABINE [Concomitant]
     Active Substance: DECITABINE
     Dosage: 20 UNK
     Dates: start: 20120319, end: 20120323
  17. DECITABINE [Concomitant]
     Active Substance: DECITABINE
     Dosage: 20 UNK
     Dates: start: 20120507, end: 20120511
  18. DECITABINE [Concomitant]
     Active Substance: DECITABINE
     Dosage: 20 UNK
     Dates: start: 20120702, end: 20120706
  19. DECITABINE [Concomitant]
     Active Substance: DECITABINE
     Dosage: 20 UNK
     Dates: start: 20120903, end: 20120907
  20. DECITABINE [Concomitant]
     Active Substance: DECITABINE
     Dosage: 20 UNK
     Dates: start: 20121113, end: 20121115
  21. DECITABINE [Concomitant]
     Active Substance: DECITABINE
     Dosage: 20 UNK
     Dates: start: 20110919, end: 20110923
  22. ACECLOFENAC [Concomitant]
     Active Substance: ACECLOFENAC
     Indication: Product used for unknown indication
     Dosage: UNK
     Dates: start: 20111028, end: 20111103
  23. BENZYDAMINE [Concomitant]
     Active Substance: BENZYDAMINE
     Indication: Product used for unknown indication
     Dosage: UNK
     Dates: start: 20110808, end: 20110909
  24. CAROVERINE [Concomitant]
     Indication: Product used for unknown indication
     Dosage: UNK
     Dates: start: 20110824, end: 20110824
  25. DANAZOL [Concomitant]
     Active Substance: DANAZOL
     Indication: Product used for unknown indication
     Dosage: UNK
     Dates: start: 20110822, end: 20111222
  26. DEFERASIROX [Concomitant]
     Active Substance: DEFERASIROX
     Indication: Product used for unknown indication
     Dosage: UNK
     Dates: start: 20111216
  27. ITRACONAZOLE [Concomitant]
     Active Substance: ITRACONAZOLE
     Indication: Product used for unknown indication
     Dosage: UNK
     Dates: start: 20110808, end: 20110911
  28. LENOGRASTIM [Concomitant]
     Active Substance: LENOGRASTIM
     Indication: Product used for unknown indication
     Dosage: UNK
     Dates: start: 20110923, end: 20120629
  29. LENOGRASTIM [Concomitant]
     Active Substance: LENOGRASTIM
     Dosage: UNK
     Dates: start: 20120701, end: 20121102
  30. LEVOFLOXACIN [Concomitant]
     Active Substance: LEVOFLOXACIN
     Indication: Product used for unknown indication
     Dosage: UNK
     Dates: start: 20110808, end: 20111222
  31. LEVOFLOXACIN [Concomitant]
     Active Substance: LEVOFLOXACIN
     Dosage: UNK
     Dates: start: 20111223, end: 20121025
  32. MEGESTROL [Concomitant]
     Active Substance: MEGESTROL
     Indication: Product used for unknown indication
     Dosage: UNK
     Dates: start: 20110902, end: 20110929
  33. METOCLOPRAMIDE [Concomitant]
     Active Substance: METOCLOPRAMIDE
     Indication: Product used for unknown indication
     Dosage: UNK
     Dates: start: 20110812, end: 20110825
  34. ACETAMINOPHEN [Concomitant]
     Active Substance: ACETAMINOPHEN
     Indication: Product used for unknown indication
     Dosage: UNK
     Dates: start: 20111125, end: 20111201
  35. PYRIDOXINE [Concomitant]
     Active Substance: PYRIDOXINE
     Indication: Product used for unknown indication
     Dosage: UNK
     Dates: start: 20110808
  36. TIROPRAMIDE [Concomitant]
     Active Substance: TIROPRAMIDE
     Indication: Product used for unknown indication
     Dosage: UNK
     Dates: start: 20110824, end: 20111006
  37. ACETAMINOPHEN\TRAMADOL [Concomitant]
     Active Substance: ACETAMINOPHEN\TRAMADOL
     Indication: Product used for unknown indication
     Dosage: UNK
     Dates: start: 20111118, end: 20111124
  38. TRANEXAMIC ACID [Concomitant]
     Active Substance: TRANEXAMIC ACID
     Indication: Product used for unknown indication
     Dosage: UNK
     Dates: start: 20110822

REACTIONS (1)
  - Pneumonia [Fatal]

NARRATIVE: CASE EVENT DATE: 20121209
